FAERS Safety Report 23469034 (Version 2)
Quarter: 2024Q1

REPORT INFORMATION
  Report Type: Spontaneous
  Country: US (occurrence: US)
  Receive Date: 20240202
  Receipt Date: 20240209
  Transmission Date: 20240409
  Serious: Yes (Death)
  Sender: FDA-Public Use
  Company Number: US-COHERUS BIOSCIENCES, Inc.-2024-COH-US000046

PATIENT

DRUGS (1)
  1. CIMERLI [Suspect]
     Active Substance: RANIBIZUMAB-EQRN
     Indication: Diabetic retinal oedema
     Dosage: 0.3 MG, EVERY 3-4 MONTHS
     Dates: start: 20230317, end: 20231002

REACTIONS (1)
  - Death [Fatal]
